FAERS Safety Report 9110268 (Version 2)
Quarter: 2017Q4

REPORT INFORMATION
  Report Type: Spontaneous
  Country: CO (occurrence: CO)
  Receive Date: 20130222
  Receipt Date: 20171205
  Transmission Date: 20180321
  Serious: Yes (Death, Hospitalization)
  Sender: FDA-Public Use
  Company Number: CO-UCBSA-078727

PATIENT
  Age: 76 Year
  Sex: Male

DRUGS (1)
  1. ROTIGOTINE [Suspect]
     Active Substance: ROTIGOTINE
     Indication: PARKINSON^S DISEASE
     Dosage: 10 MG, ONCE DAILY (QD)
     Route: 062
     Dates: start: 20120718, end: 20130206

REACTIONS (4)
  - Cardiac failure [Fatal]
  - Renal failure [Fatal]
  - Pneumonia [Fatal]
  - Urinary tract infection [Fatal]
